FAERS Safety Report 26022215 (Version 3)
Quarter: 2025Q4

REPORT INFORMATION
  Report Type: Report from Study
  Country: CA (occurrence: CA)
  Receive Date: 20251110
  Receipt Date: 20251226
  Transmission Date: 20260118
  Serious: Yes (Other)
  Sender: TEVA
  Company Number: CA-TEVA-VS-3242613

PATIENT
  Age: 64 Year
  Sex: Female

DRUGS (7)
  1. AJOVY [Suspect]
     Active Substance: FREMANEZUMAB-VFRM
     Indication: Migraine prophylaxis
     Dosage: LAST DOSE ADMINISTERED DATE: OCTOBER
     Route: 058
     Dates: start: 20240414
  2. TOPIRAMATE [Concomitant]
     Active Substance: TOPIRAMATE
     Indication: Product used for unknown indication
     Dosage: ACTIVE
  3. GABAPENTIN [Concomitant]
     Active Substance: GABAPENTIN
     Indication: Product used for unknown indication
     Dosage: ACTIVE
  4. PROPRANOLOL [Concomitant]
     Active Substance: PROPRANOLOL HYDROCHLORIDE
     Indication: Product used for unknown indication
     Dosage: ACTIVE
  5. DULOXETINE [Concomitant]
     Active Substance: DULOXETINE
     Indication: Product used for unknown indication
     Dosage: ACTIVE
  6. AMITRIPTYLINE [Concomitant]
     Active Substance: AMITRIPTYLINE
     Indication: Product used for unknown indication
     Dosage: DISCONTINUED
  7. PRIMIDONE [Concomitant]
     Active Substance: PRIMIDONE
     Indication: Product used for unknown indication
     Dosage: DISCONTINUED

REACTIONS (13)
  - Cataract [Unknown]
  - Bronchitis [Not Recovered/Not Resolved]
  - Nasopharyngitis [Not Recovered/Not Resolved]
  - Illness [Not Recovered/Not Resolved]
  - Viral infection [Unknown]
  - Inappropriate schedule of product administration [Unknown]
  - Injection site pain [Unknown]
  - Migraine [Recovering/Resolving]
  - Stress [Unknown]
  - Procedural anxiety [Unknown]
  - Procedural pain [Unknown]
  - Lower respiratory tract infection [Unknown]
  - Sinusitis [Unknown]

NARRATIVE: CASE EVENT DATE: 20240101
